FAERS Safety Report 6992196-2 (Version None)
Quarter: 2010Q3

REPORT INFORMATION
  Report Type: 
  Country: None (occurrence: None)
  Receive Date: 20100917
  Receipt Date: 20100817
  Transmission Date: 20110219
  Serious: No
  Sender: FDA-Public Use
  Company Number: US-BAYER-201017903BCC

PATIENT
  Age: 85 Year
  Sex: Male
  Weight: 86 kg

DRUGS (7)
  1. ALEVE (CAPLET) [Suspect]
     Indication: PAIN IN EXTREMITY
     Dosage: TOTAL DAILY DOSE: 440 MG  UNIT DOSE: 220 MG
     Route: 048
     Dates: start: 20100706
  2. WARFARIN SODIUM [Concomitant]
     Route: 065
  3. ENALAPRIL [Concomitant]
     Route: 065
  4. FUROSEMIDE [Concomitant]
     Route: 065
  5. NIFEDIAC [Concomitant]
     Route: 065
  6. PANTOPRAZOLE [Concomitant]
     Route: 065
  7. SIMVASTATIN [Concomitant]
     Route: 065

REACTIONS (4)
  - BLOOD DISORDER [None]
  - EPISTAXIS [None]
  - ERYTHEMA [None]
  - RASH MACULAR [None]
